FAERS Safety Report 6308485-0 (Version None)
Quarter: 2009Q3

REPORT INFORMATION
  Report Type: 
  Country: None (occurrence: None)
  Receive Date: 20090811
  Receipt Date: 20090727
  Transmission Date: 20100115
  Serious: Yes (Hospitalization, Other)
  Sender: FDA-Public Use
  Company Number: TPH-00205

PATIENT
  Age: 28 Year
  Sex: Female

DRUGS (1)
  1. SOPHIA (TRIPHASIL 28) [Suspect]
     Indication: MENSTRUATION IRREGULAR
     Dosage: ORAL
     Route: 048
     Dates: start: 20080601

REACTIONS (2)
  - HYPERLIPIDAEMIA [None]
  - PANCREATITIS ACUTE [None]
